FAERS Safety Report 11934554 (Version 1)
Quarter: 2016Q1

REPORT INFORMATION
  Report Type: Spontaneous
  Country: CA (occurrence: CA)
  Receive Date: 20160121
  Receipt Date: 20160121
  Transmission Date: 20160526
  Serious: Yes (Other)
  Sender: FDA-Public Use
  Company Number: CA-SUN PHARMACEUTICAL INDUSTRIES LTD-2016US-110073

PATIENT
  Age: 79 Year
  Sex: Male

DRUGS (3)
  1. DEXAMETHASONE. [Concomitant]
     Active Substance: DEXAMETHASONE
     Indication: METASTATIC NEOPLASM
     Dosage: 2 MG, BID
     Route: 048
  2. LEUPROLIDE [Concomitant]
     Active Substance: LEUPROLIDE
     Indication: METASTATIC NEOPLASM
     Dosage: 22.5 MG
     Route: 058
  3. BICALUTAMIDE. [Suspect]
     Active Substance: BICALUTAMIDE
     Indication: METASTATIC NEOPLASM
     Dosage: 50 MG, DAILY
     Route: 048

REACTIONS (1)
  - Therapeutic response decreased [Unknown]
